FAERS Safety Report 7954331-9 (Version None)
Quarter: 2011Q4

REPORT INFORMATION
  Report Type: 
  Country: None (occurrence: None)
  Receive Date: 20111202
  Receipt Date: 20111123
  Transmission Date: 20120403
  Serious: Yes (Hospitalization)
  Sender: FDA-Public Use
  Company Number: FR-EISAI INC-E2090-01868-SPO-FR

PATIENT
  Sex: Male

DRUGS (3)
  1. PHENOBARBITAL TAB [Suspect]
     Indication: POST-TRAUMATIC EPILEPSY
     Dosage: UNKNOWN
     Route: 065
     Dates: start: 19880101
  2. ZONEGRAN [Suspect]
     Indication: POST-TRAUMATIC EPILEPSY
     Dosage: UNKNOWN
     Route: 048
  3. DEPAKENE [Suspect]
     Indication: POST-TRAUMATIC EPILEPSY
     Dosage: UNKNOWN
     Route: 048

REACTIONS (1)
  - PANCREATITIS ACUTE [None]
